FAERS Safety Report 6907837-5 (Version None)
Quarter: 2010Q3

REPORT INFORMATION
  Report Type: 
  Country: None (occurrence: None)
  Receive Date: 20100803
  Receipt Date: 20091216
  Transmission Date: 20110219
  Serious: Yes (Other)
  Sender: FDA-Public Use
  Company Number: 2009SP042021

PATIENT
  Sex: Female

DRUGS (1)
  1. INTERFERON ALFA [Suspect]
     Indication: HEPATITIS C

REACTIONS (4)
  - ARTHRITIS VIRAL [None]
  - COLITIS [None]
  - OEDEMA PERIPHERAL [None]
  - PAIN [None]
